FAERS Safety Report 4694775-4 (Version None)
Quarter: 2005Q2

REPORT INFORMATION
  Report Type: 
  Country: None (occurrence: None)
  Receive Date: 20050617
  Receipt Date: 20050608
  Transmission Date: 20051028
  Serious: Yes (Life-Threatening, Hospitalization, Other)
  Sender: FDA-Public Use
  Company Number: 2005-06-0616

PATIENT
  Age: 45 Year
  Sex: Female

DRUGS (9)
  1. PEG-INTRON [Suspect]
     Indication: HEPATITIS C
     Dosage: 120 MCG SUBCUTANEOUS
     Route: 058
     Dates: start: 20050128, end: 20050411
  2. RIBASPHERE [Suspect]
     Indication: HEPATITIS C
     Dosage: ORAL
     Route: 048
     Dates: start: 20050128, end: 20050411
  3. ALPRAZOLAM [Concomitant]
  4. LASIX [Concomitant]
  5. METOCLOPRAMIDE HYDROCHLORIDE TABLETS [Concomitant]
  6. NEXIUM [Concomitant]
  7. PREMARIN [Concomitant]
  8. PROPRANOLOL HYDROCHLORIDE TABLETS [Concomitant]
  9. ZELNORM (TEGASEROD MALEATE) TABLETS [Concomitant]

REACTIONS (3)
  - DYSPHONIA [None]
  - PNEUMONIA [None]
  - VOCAL CORD PARALYSIS [None]
